FAERS Safety Report 23260978 (Version 1)
Quarter: 2023Q4

REPORT INFORMATION
  Report Type: Spontaneous
  Country: CN (occurrence: CN)
  Receive Date: 20231205
  Receipt Date: 20231205
  Transmission Date: 20240109
  Serious: Yes (Other)
  Sender: FDA-Public Use
  Company Number: CN-AMGEN-CHNSP2023213886

PATIENT
  Age: 45 Year
  Sex: Female

DRUGS (1)
  1. XGEVA [Suspect]
     Active Substance: DENOSUMAB
     Indication: Lung cancer metastatic
     Dosage: 120 MILLIGRAM, EVERY 28 DAYS
     Route: 058
     Dates: start: 20221014

REACTIONS (3)
  - Fasciitis [Unknown]
  - Gingival swelling [Unknown]
  - Gingival pain [Unknown]

NARRATIVE: CASE EVENT DATE: 20231101
